FAERS Safety Report 19117476 (Version 1)
Quarter: 2021Q2

REPORT INFORMATION
  Report Type: Spontaneous
  Country: AU (occurrence: AU)
  Receive Date: 20210409
  Receipt Date: 20210409
  Transmission Date: 20210717
  Serious: Yes (Other)
  Sender: FDA-Public Use
  Company Number: AU-ASTRAZENECA-2021A267143

PATIENT
  Sex: Female

DRUGS (1)
  1. OLAPARIB. [Suspect]
     Active Substance: OLAPARIB
     Indication: UTERINE LEIOMYOSARCOMA
     Dosage: 300.0MG UNKNOWN
     Route: 048

REACTIONS (2)
  - Off label use [Unknown]
  - Aplasia pure red cell [Unknown]
